FAERS Safety Report 4774998-6 (Version None)
Quarter: 2005Q3

REPORT INFORMATION
  Report Type: 
  Country: None (occurrence: None)
  Receive Date: 20050921
  Receipt Date: 20050823
  Transmission Date: 20060218
  Serious: Yes (Death)
  Sender: FDA-Public Use
  Company Number: FR-BRISTOL-MYERS SQUIBB COMPANY-13117379

PATIENT
  Age: 42 Year
  Sex: Female

DRUGS (5)
  1. ENDOXAN [Suspect]
     Indication: BREAST CANCER
     Dates: start: 19890101, end: 19890101
  2. METHOTREXATE [Suspect]
     Indication: BREAST CANCER
     Dates: start: 19890101, end: 19890101
  3. VINCRISTINE SULFATE [Suspect]
     Indication: BREAST CANCER
     Dates: start: 19890101, end: 19890101
  4. DOXORUBICIN BAXTER [Suspect]
     Indication: BREAST CANCER
     Dates: start: 19890101, end: 19890101
  5. FLUOROURACIL [Suspect]
     Indication: BREAST CANCER
     Route: 042

REACTIONS (3)
  - DRUG EXPOSURE DURING PREGNANCY [None]
  - INTRA-UTERINE DEATH [None]
  - PREGNANCY [None]
